FAERS Safety Report 16688380 (Version 1)
Quarter: 2019Q3

REPORT INFORMATION
  Report Type: Spontaneous
  Country: PK (occurrence: PK)
  Receive Date: 20190809
  Receipt Date: 20190809
  Transmission Date: 20191004
  Serious: Yes (Death)
  Sender: FDA-Public Use
  Company Number: PK-BEH-2019105349

PATIENT
  Age: 7 Year
  Sex: Female

DRUGS (18)
  1. HUMAN IMMUNOGLOBULIN (INN) [Suspect]
     Active Substance: HUMAN IMMUNOGLOBULIN G
     Indication: EPSTEIN-BARR VIRUS ASSOCIATED LYMPHOPROLIFERATIVE DISORDER
     Route: 042
  2. HUMAN IMMUNOGLOBULIN (INN) [Suspect]
     Active Substance: HUMAN IMMUNOGLOBULIN G
     Indication: FEBRILE NEUTROPENIA
  3. CYCLOPHOSPHAMIDE. [Suspect]
     Active Substance: CYCLOPHOSPHAMIDE
     Indication: EPSTEIN-BARR VIRUS ASSOCIATED LYMPHOPROLIFERATIVE DISORDER
     Route: 065
  4. PREDNISONE. [Suspect]
     Active Substance: PREDNISONE
     Indication: EPSTEIN-BARR VIRUS ASSOCIATED LYMPHOPROLIFERATIVE DISORDER
     Route: 065
  5. DACARBAZINE. [Suspect]
     Active Substance: DACARBAZINE
     Indication: FEBRILE NEUTROPENIA
  6. CYCLOPHOSPHAMIDE. [Suspect]
     Active Substance: CYCLOPHOSPHAMIDE
     Indication: FEBRILE NEUTROPENIA
  7. DACARBAZINE. [Suspect]
     Active Substance: DACARBAZINE
     Indication: MULTIPLE ORGAN DYSFUNCTION SYNDROME
  8. AMPHOTERICIN B. [Suspect]
     Active Substance: AMPHOTERICIN B
     Indication: EPSTEIN-BARR VIRUS ASSOCIATED LYMPHOPROLIFERATIVE DISORDER
     Route: 065
  9. AMPHOTERICIN B. [Suspect]
     Active Substance: AMPHOTERICIN B
     Indication: MULTIPLE ORGAN DYSFUNCTION SYNDROME
  10. VINCRISTINE [Suspect]
     Active Substance: VINCRISTINE
     Indication: EPSTEIN-BARR VIRUS ASSOCIATED LYMPHOPROLIFERATIVE DISORDER
     Route: 065
  11. VINCRISTINE [Suspect]
     Active Substance: VINCRISTINE
     Indication: FEBRILE NEUTROPENIA
  12. VINCRISTINE [Suspect]
     Active Substance: VINCRISTINE
     Indication: MULTIPLE ORGAN DYSFUNCTION SYNDROME
  13. PREDNISONE. [Suspect]
     Active Substance: PREDNISONE
     Indication: MULTIPLE ORGAN DYSFUNCTION SYNDROME
  14. PREDNISONE. [Suspect]
     Active Substance: PREDNISONE
     Indication: FEBRILE NEUTROPENIA
  15. AMPHOTERICIN B. [Suspect]
     Active Substance: AMPHOTERICIN B
     Indication: FEBRILE NEUTROPENIA
  16. CYCLOPHOSPHAMIDE. [Suspect]
     Active Substance: CYCLOPHOSPHAMIDE
     Indication: MULTIPLE ORGAN DYSFUNCTION SYNDROME
  17. DACARBAZINE. [Suspect]
     Active Substance: DACARBAZINE
     Indication: EPSTEIN-BARR VIRUS ASSOCIATED LYMPHOPROLIFERATIVE DISORDER
     Route: 065
  18. HUMAN IMMUNOGLOBULIN (INN) [Suspect]
     Active Substance: HUMAN IMMUNOGLOBULIN G
     Indication: MULTIPLE ORGAN DYSFUNCTION SYNDROME

REACTIONS (2)
  - Drug ineffective for unapproved indication [Fatal]
  - Product use in unapproved indication [Fatal]
